FAERS Safety Report 17418506 (Version 2)
Quarter: 2020Q1

REPORT INFORMATION
  Report Type: Report from Study
  Country: US (occurrence: US)
  Receive Date: 20200214
  Receipt Date: 20200319
  Transmission Date: 20200409
  Serious: Yes (Other)
  Sender: FDA-Public Use
  Company Number: US-BAYER-2020-023462

PATIENT
  Age: 69 Year
  Sex: Female

DRUGS (1)
  1. VITRAKVI [Suspect]
     Active Substance: LAROTRECTINIB
     Indication: NEOPLASM
     Dosage: 200 MG, QD
     Dates: start: 20200118, end: 20200130

REACTIONS (12)
  - Dizziness [Recovered/Resolved]
  - Constipation [Recovered/Resolved]
  - Neurological examination abnormal [Recovered/Resolved]
  - Balance disorder [Recovered/Resolved]
  - Sinus disorder [None]
  - Hepatic enzyme increased [Not Recovered/Not Resolved]
  - Hemianaesthesia [Not Recovered/Not Resolved]
  - Pain [Recovered/Resolved]
  - Influenza like illness [Recovered/Resolved]
  - Road traffic accident [Recovered/Resolved]
  - Nausea [Recovered/Resolved]
  - Fatigue [Recovered/Resolved]

NARRATIVE: CASE EVENT DATE: 20200123
